FAERS Safety Report 8538224-4 (Version None)
Quarter: 2012Q3

REPORT INFORMATION
  Report Type: 
  Country: None (occurrence: None)
  Receive Date: 20120726
  Receipt Date: 20120716
  Transmission Date: 20120928
  Serious: Yes (Hospitalization)
  Sender: FDA-Public Use
  Company Number: US-BIOGENIDEC-2012BI025463

PATIENT
  Age: 34 Year
  Sex: Female

DRUGS (1)
  1. AVONEX [Suspect]
     Indication: MULTIPLE SCLEROSIS
     Route: 030
     Dates: start: 20071101

REACTIONS (7)
  - SOMNOLENCE [None]
  - LIGAMENT SPRAIN [None]
  - FATIGUE [None]
  - DEHYDRATION [None]
  - CONVULSION [None]
  - FALL [None]
  - MULTIPLE SCLEROSIS RELAPSE [None]
